FAERS Safety Report 9880439 (Version 2)
Quarter: 2014Q2

REPORT INFORMATION
  Report Type: Spontaneous
  Country: FR (occurrence: None)
  Receive Date: 20140204
  Receipt Date: 20140603
  Transmission Date: 20141212
  Serious: Yes (Death, Hospitalization, Other)
  Sender: FDA-Public Use
  Company Number: 2014FR002983

PATIENT
  Age: 54 Year
  Sex: Male

DRUGS (14)
  1. ICLUSING [Suspect]
     Indication: ACUTE LYMPHOCYTIC LEUKAEMIA
     Route: 048
     Dates: start: 20131129, end: 201312
  2. ICLUSING [Suspect]
     Indication: CHROMOSOME ANALYSIS ABNORMAL
     Route: 048
     Dates: start: 20131129, end: 201312
  3. EZETROL [Concomitant]
  4. KARDEGIC [Concomitant]
  5. SEROPLEX [Concomitant]
  6. ZELITREX [Concomitant]
  7. HYPERIUM [Concomitant]
  8. LOXEN [Concomitant]
  9. EUPANTOL [Concomitant]
  10. ROCEPHINE [Concomitant]
  11. AUGMENTIN [Concomitant]
  12. OFLOCET [Concomitant]
  13. PARACETAMOL [Concomitant]
  14. GRANOCYTE (LENOGRASTIM) (INJECTION) (LENOGRASTIME) [Concomitant]

REACTIONS (18)
  - Pulmonary embolism [None]
  - Acute respiratory distress syndrome [None]
  - Pneumonia [None]
  - Venous thrombosis limb [None]
  - Thrombocytopenia [None]
  - Anaemia [None]
  - Renal failure acute [None]
  - Haemodynamic instability [None]
  - Hypertension [None]
  - Epistaxis [None]
  - Haematochezia [None]
  - Fatigue [None]
  - Oedema [None]
  - Oedema peripheral [None]
  - Oral mucosal blistering [None]
  - Blood blister [None]
  - Dry mouth [None]
  - Deep vein thrombosis [None]
